FAERS Safety Report 5352191-6 (Version None)
Quarter: 2007Q2

REPORT INFORMATION
  Report Type: 
  Country: None (occurrence: None)
  Receive Date: 20070606
  Receipt Date: 20070523
  Transmission Date: 20071010
  Serious: Yes (Other)
  Sender: FDA-Public Use
  Company Number: 2007RR-07799

PATIENT
  Sex: Male

DRUGS (7)
  1. SIMVASTATIN [Suspect]
     Indication: BLOOD CHOLESTEROL INCREASED
     Dosage: 20 MG, ORAL
     Route: 048
     Dates: start: 20061001
  2. AMLODIPINE MALEATE (AMLODIPINE) [Concomitant]
  3. ASPIRIN [Concomitant]
  4. INDAPAMIDE [Concomitant]
  5. LISINOPRIL [Concomitant]
  6. NEBIVOLOL [Concomitant]
  7. OXAZEPAM [Concomitant]

REACTIONS (2)
  - ARTERIOVENOUS MALFORMATION [None]
  - CONVULSION [None]
